FAERS Safety Report 16839522 (Version 1)
Quarter: 2019Q3

REPORT INFORMATION
  Report Type: Spontaneous
  Country: US (occurrence: US)
  Receive Date: 20190731
  Receipt Date: 20190731
  Transmission Date: 20191005
  Serious: No
  Sender: FDA-Public Use
  Company Number: None

PATIENT
  Age: 69 Year
  Sex: Female
  Weight: 67.13 kg

DRUGS (10)
  1. MAGNESIUM 2000MG [Concomitant]
  2. AMLODIPINE BESYLATE. [Suspect]
     Active Substance: AMLODIPINE BESYLATE
     Indication: HYPERTENSION
     Route: 048
     Dates: start: 20180626
  3. VITAMIN K [Concomitant]
     Active Substance: PHYTONADIONE
  4. ZOMIG (AS NEEDED) [Concomitant]
  5. KRILL OIL 1000MG [Concomitant]
  6. ASPIRIN 81MG [Concomitant]
     Active Substance: ASPIRIN
  7. LUTEIN 20MG [Concomitant]
  8. ESTRADIOL CREME [Concomitant]
  9. Q-10 100MG [Concomitant]
  10. VIT D [Concomitant]
     Active Substance: VITAMIN D NOS

REACTIONS (1)
  - Nocturia [None]
